FAERS Safety Report 10210733 (Version 1)
Quarter: 2014Q2

REPORT INFORMATION
  Report Type: Spontaneous
  Country: US (occurrence: US)
  Receive Date: 20140602
  Receipt Date: 20140602
  Transmission Date: 20141212
  Serious: Yes (Other)
  Sender: FDA-Public Use
  Company Number: US-ELI_LILLY_AND_COMPANY-US201405007377

PATIENT
  Age: 44 Year
  Sex: Female

DRUGS (1)
  1. INSULIN LISPRO [Suspect]
     Indication: TYPE 1 DIABETES MELLITUS
     Dosage: 70 U, QD
     Route: 058

REACTIONS (3)
  - Ketoacidosis [Recovered/Resolved]
  - Hyperglycaemia [Recovered/Resolved]
  - Drug ineffective [Recovered/Resolved]
